FAERS Safety Report 7309316-2 (Version None)
Quarter: 2011Q1

REPORT INFORMATION
  Report Type: 
  Country: None (occurrence: None)
  Receive Date: 20110223
  Receipt Date: 20110210
  Transmission Date: 20110831
  Serious: Yes (Hospitalization)
  Sender: FDA-Public Use
  Company Number: US-ELI_LILLY_AND_COMPANY-US200910000593

PATIENT
  Sex: Female

DRUGS (3)
  1. FORTEO [Suspect]
     Indication: OSTEOPOROSIS
     Dosage: 20 UG, DAILY (1/D)
     Dates: start: 20090903
  2. FORTEO [Suspect]
     Dosage: 20 UG, DAILY (1/D)
  3. FORTEO [Suspect]
     Dosage: 20 UG, DAILY (1/D)

REACTIONS (16)
  - LACERATION [None]
  - SKIN INJURY [None]
  - BACK PAIN [None]
  - MIDDLE INSOMNIA [None]
  - ERYTHEMA [None]
  - INJECTION SITE HAEMORRHAGE [None]
  - LOWER EXTREMITY MASS [None]
  - ABDOMINAL DISCOMFORT [None]
  - PRURITUS [None]
  - SKIN HAEMORRHAGE [None]
  - SPINAL COMPRESSION FRACTURE [None]
  - FALL [None]
  - ARTHRALGIA [None]
  - HEAD INJURY [None]
  - BURSITIS [None]
  - HAEMORRHAGE [None]
